FAERS Safety Report 8835050 (Version 1)
Quarter: 2012Q4

REPORT INFORMATION
  Report Type: 
  Country: CN (occurrence: CN)
  Receive Date: 20121011
  Receipt Date: 20121011
  Transmission Date: 20130627
  Serious: Yes (Other)
  Sender: FDA-Public Use
  Company Number: CN-ELI_LILLY_AND_COMPANY-CN201209004853

PATIENT
  Age: 22 Year
  Sex: Male

DRUGS (2)
  1. HUMALOG LISPRO [Suspect]
     Indication: HYPERGLYCAEMIA
     Dosage: 4 u, tid
     Route: 058
  2. HUMALOG LISPRO [Suspect]
     Dosage: UNK
     Route: 058

REACTIONS (13)
  - Paralysis [Recovering/Resolving]
  - Palpitations [Unknown]
  - Drug ineffective [Recovered/Resolved]
  - Hyperglycaemia [Unknown]
  - Diabetic vascular disorder [Unknown]
  - Blood glucose decreased [Recovered/Resolved]
  - Vision blurred [Recovering/Resolving]
  - Dizziness [Recovered/Resolved]
  - Headache [Recovering/Resolving]
  - Pain [Recovering/Resolving]
  - Pharyngitis [Recovering/Resolving]
  - Upper respiratory tract infection [Unknown]
  - Pyrexia [Unknown]
